FAERS Safety Report 24823393 (Version 1)
Quarter: 2025Q1

REPORT INFORMATION
  Report Type: Spontaneous
  Country: FR (occurrence: FR)
  Receive Date: 20250109
  Receipt Date: 20250109
  Transmission Date: 20250409
  Serious: Yes (Hospitalization, Other)
  Sender: CHEPLAPHARM
  Company Number: None

PATIENT
  Age: 41 Year
  Sex: Female
  Weight: 70 kg

DRUGS (8)
  1. CAPECITABINE [Suspect]
     Active Substance: CAPECITABINE
     Indication: Breast cancer metastatic
     Route: 048
     Dates: start: 202312
  2. CAPECITABINE [Suspect]
     Active Substance: CAPECITABINE
     Indication: Breast cancer metastatic
  3. TUKYSA [Suspect]
     Active Substance: TUCATINIB
     Indication: Breast cancer metastatic
     Dosage: 600 MG/D. 1FP. TUCATINIB PO 150 MG 2 TAB X 2/D?DAILY DOSE: 600 MILLIGRAM
     Route: 048
     Dates: start: 202312, end: 20240418
  4. KADCYLA [Suspect]
     Active Substance: ADO-TRASTUZUMAB EMTANSINE
     Indication: Pulmonary arterial hypertension
     Route: 042
     Dates: start: 2016, end: 202312
  5. KADCYLA [Suspect]
     Active Substance: ADO-TRASTUZUMAB EMTANSINE
     Indication: Breast cancer metastatic
     Route: 042
     Dates: start: 2016, end: 202312
  6. HERCEPTIN [Suspect]
     Active Substance: TRASTUZUMAB
     Indication: Breast cancer metastatic
     Dosage: HERCEPTIN (TRASTUZUMAB SC) X 3 INJ/WEEK, SINCE 12/2023
     Route: 058
     Dates: start: 202312
  7. HERCEPTIN [Suspect]
     Active Substance: TRASTUZUMAB
     Indication: Breast cancer metastatic
     Dosage: TRASTUZUMAB SC X 1 INJ/3 WEEKS
     Route: 058
  8. ESOMEPRAZOLE [Suspect]
     Active Substance: ESOMEPRAZOLE
     Dosage: ESOMEPRAZOLE 40 MG PO X 1 CAPSULE/D?DAILY DOSE: 1 DOSAGE FORM
     Route: 048

REACTIONS (7)
  - Hepatopulmonary syndrome [Recovering/Resolving]
  - Nodular regenerative hyperplasia [Recovering/Resolving]
  - Thrombocytopenia [Unknown]
  - Diarrhoea [Unknown]
  - Abdominal rigidity [Unknown]
  - Pulmonary capillary haemangiomatosis [Unknown]
  - Hepatic cirrhosis [Unknown]

NARRATIVE: CASE EVENT DATE: 20231201
